FAERS Safety Report 8491140-9 (Version None)
Quarter: 2012Q3

REPORT INFORMATION
  Report Type: 
  Country: None (occurrence: None)
  Receive Date: 20120706
  Receipt Date: 20120627
  Transmission Date: 20120928
  Serious: Yes (Other)
  Sender: FDA-Public Use
  Company Number: JP-VERTEX PHARMACEUTICALS INC.-AE-2012-007337

PATIENT
  Age: 61 Year
  Sex: Female

DRUGS (7)
  1. TELAVIC (TELAPREVIR) [Suspect]
     Indication: HEPATITIS C
     Route: 048
     Dates: start: 20120324, end: 20120330
  2. TELAVIC (TELAPREVIR) [Suspect]
     Route: 048
     Dates: start: 20120331, end: 20120622
  3. REBETOL [Concomitant]
     Route: 048
     Dates: start: 20120331
  4. REBETOL [Concomitant]
     Indication: HEPATITIS C
     Route: 048
     Dates: start: 20120324, end: 20120330
  5. PEG-INTRON [Concomitant]
     Route: 058
     Dates: start: 20120406
  6. PEG-INTRON [Concomitant]
     Indication: HEPATITIS C
     Route: 058
     Dates: start: 20120324, end: 20120329
  7. PEG-INTRON [Concomitant]
     Route: 058
     Dates: start: 20120330, end: 20120405

REACTIONS (2)
  - NAUSEA [None]
  - DECREASED APPETITE [None]
